FAERS Safety Report 4601481-0 (Version None)
Quarter: 2005Q1

REPORT INFORMATION
  Report Type: 
  Country: None (occurrence: None)
  Receive Date: 20050202
  Receipt Date: 20040805
  Transmission Date: 20050727
  Serious: Yes (Other)
  Sender: FDA-Public Use
  Company Number: 8006975

PATIENT
  Age: 48 Year
  Sex: Male

DRUGS (2)
  1. KEPPRA [Suspect]
     Indication: CONVULSION
     Dosage: PO
     Route: 048
     Dates: start: 20030101
  2. KEPPRA [Suspect]
     Indication: CONVULSION
     Dosage: 500 MG 2/D PO
     Route: 048

REACTIONS (6)
  - ANXIETY [None]
  - APATHY [None]
  - DEPRESSION [None]
  - HOSTILITY [None]
  - SLEEP DISORDER [None]
  - SUICIDAL IDEATION [None]
